FAERS Safety Report 4973404-6 (Version None)
Quarter: 2006Q2

REPORT INFORMATION
  Report Type: 
  Country: None (occurrence: None)
  Receive Date: 20060413
  Receipt Date: 20060413
  Transmission Date: 20061013
  Serious: No
  Sender: FDA-Public Use
  Company Number: None

PATIENT
  Age: 75 Year
  Sex: Female
  Weight: 70.7611 kg

DRUGS (1)
  1. ALBUTEROL [Suspect]
     Dosage: 2 PUFFS 4-6 HRS
     Route: 055
     Dates: start: 20060305

REACTIONS (5)
  - ORAL DISCOMFORT [None]
  - ORAL MUCOSAL BLISTERING [None]
  - ORAL PAIN [None]
  - PHARMACEUTICAL PRODUCT COMPLAINT [None]
  - THROAT IRRITATION [None]
